FAERS Safety Report 4887837-X (Version None)
Quarter: 2006Q1

REPORT INFORMATION
  Report Type: 
  Country: None (occurrence: None)
  Receive Date: 20060123
  Receipt Date: 20050304
  Transmission Date: 20060701
  Serious: Yes (Hospitalization)
  Sender: FDA-Public Use
  Company Number: US-MERCK-0503USA00973

PATIENT
  Age: 50 Year
  Sex: Male
  Weight: 82 kg

DRUGS (3)
  1. VIOXX [Suspect]
     Indication: ARTHRITIS
     Route: 048
  2. VIOXX [Suspect]
     Indication: OSTEOARTHRITIS
     Route: 048
  3. CLARITIN [Concomitant]
     Route: 065

REACTIONS (12)
  - ACUTE MYOCARDIAL INFARCTION [None]
  - ARTERIOSCLEROSIS CORONARY ARTERY [None]
  - ATRIOVENTRICULAR BLOCK FIRST DEGREE [None]
  - CORONARY ARTERY STENOSIS [None]
  - EXTRASYSTOLES [None]
  - GASTRITIS [None]
  - HAEMATURIA [None]
  - HYPOTENSION [None]
  - INTRACARDIAC THROMBUS [None]
  - MALLORY-WEISS SYNDROME [None]
  - UPPER GASTROINTESTINAL HAEMORRHAGE [None]
  - VENTRICULAR EXTRASYSTOLES [None]
